FAERS Safety Report 17999629 (Version 1)
Quarter: 2020Q3

REPORT INFORMATION
  Report Type: Report from Study
  Country: BE (occurrence: BE)
  Receive Date: 20200709
  Receipt Date: 20200709
  Transmission Date: 20201103
  Serious: Yes (Hospitalization, Other)
  Sender: FDA-Public Use
  Company Number: BE-ASPEN-GLO2017BE011574

PATIENT
  Age: 74 Year
  Sex: Female

DRUGS (27)
  1. POMALIDOMIDE [Suspect]
     Active Substance: POMALIDOMIDE
     Dosage: 2 MILLIGRAM
     Route: 048
     Dates: start: 20161219, end: 20170108
  2. BISOPROLOL [Concomitant]
     Active Substance: BISOPROLOL
     Indication: HYPERTENSION
     Dosage: 1.25 MILLIGRAM
     Route: 065
  3. OMIC [Concomitant]
     Indication: URINARY INCONTINENCE
     Dosage: .4 MILLIGRAM
     Route: 065
  4. BURINEX [Concomitant]
     Active Substance: BUMETANIDE
     Indication: OEDEMA PERIPHERAL
     Dosage: 1 GRAM
     Route: 065
  5. BICLAR [Concomitant]
     Active Substance: CLARITHROMYCIN
     Indication: COUGH
     Dosage: 250 MILLIGRAM
     Route: 065
  6. POMALIDOMIDE [Suspect]
     Active Substance: POMALIDOMIDE
     Indication: PLASMA CELL MYELOMA
     Dosage: 42 MG, 1 DOSE MONTHLY
     Route: 048
     Dates: start: 20170116, end: 20170205
  7. POMALIDOMIDE [Suspect]
     Active Substance: POMALIDOMIDE
     Dosage: UNK
     Route: 048
  8. LORAMET [Concomitant]
     Active Substance: LORMETAZEPAM
     Indication: INSOMNIA
     Dosage: 1 MILLIGRAM
     Route: 065
  9. URGENIN [Concomitant]
     Indication: URINARY INCONTINENCE
     Dosage: 30 OTHER
     Route: 065
  10. LYRICA [Concomitant]
     Active Substance: PREGABALIN
     Indication: NEUROPATHY PERIPHERAL
     Dosage: 300 MILLIGRAM
     Route: 065
  11. COVERSYL PLUS [Concomitant]
     Active Substance: INDAPAMIDE\PERINDOPRIL
     Indication: HYPERTENSION
     Dosage: 1 OTHER
     Route: 065
  12. L?THYROXINE [Concomitant]
     Active Substance: LEVOTHYROXINE
     Indication: HYPOTHYROIDISM
     Dosage: 50 OTHER
     Route: 065
  13. DEXAMETHASONE. [Suspect]
     Active Substance: DEXAMETHASONE
     Indication: PLASMA CELL MYELOMA
     Dosage: 40 MILLIGRAM WEEKLY
     Route: 048
     Dates: start: 20161219, end: 20170109
  14. DEXAMETHASONE. [Suspect]
     Active Substance: DEXAMETHASONE
     Dosage: 40 MILLIGRAM WEEKLY
     Route: 048
     Dates: start: 20170116, end: 20170206
  15. D?VITAL CALCIUM [Concomitant]
     Indication: OSTEOPOROSIS
     Dosage: 500 MILLIGRAM
     Route: 065
  16. DEXAMETHASONE. [Suspect]
     Active Substance: DEXAMETHASONE
     Dosage: UNK
     Route: 048
  17. ZOMETA [Concomitant]
     Active Substance: ZOLEDRONIC ACID
     Indication: METASTASES TO BONE
     Route: 065
  18. DAFALGAN [Concomitant]
     Active Substance: ACETAMINOPHEN
     Indication: BONE PAIN
     Dosage: 1 GRAM
     Route: 065
  19. DARZALEX [Concomitant]
     Active Substance: DARATUMUMAB
     Indication: PLASMA CELL MYELOMA
     Route: 065
  20. DUOVENT [Concomitant]
     Active Substance: FENOTEROL HYDROBROMIDE
     Indication: UPPER RESPIRATORY TRACT INFECTION
     Dosage: 3 OTHER
     Route: 065
  21. LYSOMUCIL [Concomitant]
     Active Substance: ACETYLCYSTEINE
     Indication: UPPER RESPIRATORY TRACT INFECTION
     Dosage: 600 MILLIGRAM
     Route: 065
  22. REDOMEX [Concomitant]
     Active Substance: AMITRIPTYLINE HYDROCHLORIDE
     Indication: NEUROPATHY PERIPHERAL
     Dosage: 50 MILLIGRAM
     Route: 065
  23. ACICLOVIR [Concomitant]
     Active Substance: ACYCLOVIR
     Indication: INFECTION
     Dosage: 1200 MILLIGRAM
     Route: 065
  24. CLEXANE [Concomitant]
     Active Substance: ENOXAPARIN SODIUM
     Indication: EMBOLISM
     Dosage: 40 IU (INTERNATIONAL UNIT)
     Route: 065
  25. PANTOMED [Concomitant]
     Indication: OESOPHAGITIS
     Dosage: 40 MILLIGRAM
     Route: 065
  26. PULMICORT TURBUHALER [Concomitant]
     Active Substance: BUDESONIDE
     Indication: COUGH
     Dosage: 3 OTHER
     Route: 065
  27. BACTRIM [Concomitant]
     Active Substance: SULFAMETHOXAZOLE\TRIMETHOPRIM
     Indication: INFECTION
     Dosage: 800 MILLIGRAM
     Route: 065

REACTIONS (3)
  - Erysipelas [Recovered/Resolved]
  - Urinary tract infection fungal [Recovered/Resolved]
  - Pathological fracture [Recovered/Resolved with Sequelae]

NARRATIVE: CASE EVENT DATE: 20161228
